FAERS Safety Report 25773931 (Version 2)
Quarter: 2025Q3

REPORT INFORMATION
  Report Type: Spontaneous
  Country: EU (occurrence: EU)
  Receive Date: 20250908
  Receipt Date: 20250911
  Transmission Date: 20251021
  Serious: Yes (Hospitalization, Other)
  Sender: ALEXION PHARMACEUTICALS
  Company Number: EU-AstraZeneca-CH-00941666A

PATIENT
  Sex: Male

DRUGS (1)
  1. ULTOMIRIS [Suspect]
     Active Substance: RAVULIZUMAB-CWVZ
     Indication: Thrombotic microangiopathy
     Dosage: 900 MILLIGRAM, Q8W
     Route: 065

REACTIONS (7)
  - Haemolysis [Unknown]
  - Renal failure [Unknown]
  - Metastatic neoplasm [Unknown]
  - Prostate cancer [Unknown]
  - Off label use [Unknown]
  - Bone cancer metastatic [Unknown]
  - Acute kidney injury [Unknown]
